FAERS Safety Report 4417704-7 (Version None)
Quarter: 2004Q2

REPORT INFORMATION
  Report Type: 
  Country: None (occurrence: None)
  Receive Date: 20040621
  Receipt Date: 20040405
  Transmission Date: 20050107
  Serious: Yes (Death, Other)
  Sender: FDA-Public Use
  Company Number: PHEH2004US03342

PATIENT
  Age: 71 Year
  Sex: Male

DRUGS (5)
  1. ZOMETA [Suspect]
     Indication: MULTIPLE MYELOMA
     Dosage: 4 MG, QMO, INTRAVENOUS
     Route: 042
     Dates: start: 20011204, end: 20031215
  2. PREDNISONE [Concomitant]
  3. THALIDOMIDE (THALIDOMIDE) [Concomitant]
  4. PAXIL [Concomitant]
  5. VELCADE [Concomitant]

REACTIONS (3)
  - BONE INFECTION [None]
  - DISEASE PROGRESSION [None]
  - OSTEONECROSIS [None]
